FAERS Safety Report 7486410-7 (Version None)
Quarter: 2011Q2

REPORT INFORMATION
  Report Type: 
  Country: None (occurrence: None)
  Receive Date: 20110517
  Receipt Date: 20110502
  Transmission Date: 20111010
  Serious: No
  Sender: FDA-Public Use
  Company Number: US-B.I. PHARMACEUTICALS,INC./RIDGEFIELD-2011-BP-12232BP

PATIENT
  Sex: Female

DRUGS (5)
  1. PRADAXA [Suspect]
     Indication: ATRIAL FIBRILLATION
     Dosage: 300 MG
     Route: 048
     Dates: start: 20110408
  2. NORPACE [Concomitant]
     Indication: ATRIAL FIBRILLATION
  3. FLOVENT [Concomitant]
     Indication: SEASONAL ALLERGY
  4. PRAVASTATIN [Concomitant]
     Indication: BLOOD CHOLESTEROL INCREASED
  5. ULTRAM [Concomitant]
     Indication: PAIN
     Dates: end: 20110414

REACTIONS (1)
  - ATRIAL FIBRILLATION [None]
